FAERS Safety Report 25908318 (Version 1)
Quarter: 2025Q4

REPORT INFORMATION
  Report Type: Spontaneous
  Country: US (occurrence: US)
  Receive Date: 20251010
  Receipt Date: 20251010
  Transmission Date: 20260118
  Serious: Yes (Hospitalization, Other)
  Sender: BRISTOL-MYERS SQUIBB COMPANY
  Company Number: US-MLMSERVICE-20250925-PI658027-00306-1

PATIENT
  Age: 63 Year
  Sex: Female

DRUGS (6)
  1. BELATACEPT [Suspect]
     Active Substance: BELATACEPT
     Indication: Immunosuppressant drug therapy
  2. TACROLIMUS [Suspect]
     Active Substance: TACROLIMUS
     Indication: Immunosuppressant drug therapy
     Dosage: TARGET TROUGH 6-8 NG/ML, TACROLIMUS GOAL WAS INCREASED (TARGET TROUGH 8-10)
  3. PREDNISONE [Suspect]
     Active Substance: PREDNISONE
     Indication: Immunosuppressant drug therapy
  4. PREDNISONE [Suspect]
     Active Substance: PREDNISONE
  5. PREDNISONE [Suspect]
     Active Substance: PREDNISONE
  6. HYDROXYCHLOROQUINE [Suspect]
     Active Substance: HYDROXYCHLOROQUINE
     Indication: Rheumatoid arthritis

REACTIONS (6)
  - Oesophageal ulcer [Recovering/Resolving]
  - Leukopenia [Unknown]
  - Oral candidiasis [Recovered/Resolved]
  - Oesophageal stenosis [Not Recovered/Not Resolved]
  - Oesophageal candidiasis [Recovering/Resolving]
  - Hypogammaglobulinaemia [Unknown]
